FAERS Safety Report 5605454-0 (Version None)
Quarter: 2008Q1

REPORT INFORMATION
  Report Type: 
  Country: None (occurrence: None)
  Receive Date: 20080124
  Receipt Date: 20080124
  Transmission Date: 20080703
  Serious: Yes (Hospitalization)
  Sender: FDA-Public Use
  Company Number: None

PATIENT
  Sex: Male
  Weight: 58 kg

DRUGS (2)
  1. GEMCITABINE [Suspect]
     Indication: SQUAMOUS CELL CARCINOMA
     Dosage: Q2 WEEKS IV
     Route: 042
  2. DOCETAXEL [Suspect]
     Indication: SQUAMOUS CELL CARCINOMA
     Dosage: Q2 WEEKS IV
     Route: 042

REACTIONS (3)
  - BRONCHITIS [None]
  - DRY MOUTH [None]
  - TACHYCARDIA [None]
